FAERS Safety Report 13750283 (Version 2)
Quarter: 2017Q3

REPORT INFORMATION
  Report Type: Spontaneous
  Country: US (occurrence: US)
  Receive Date: 20170713
  Receipt Date: 20170901
  Transmission Date: 20171127
  Serious: Yes (Other)
  Sender: FDA-Public Use
  Company Number: US-PFIZER INC-2017296600

PATIENT
  Sex: Female

DRUGS (2)
  1. SULFASALAZINE. [Suspect]
     Active Substance: SULFASALAZINE
     Dosage: 1000 MG, 2X/DAY
  2. METHOTREXATE SODIUM. [Suspect]
     Active Substance: METHOTREXATE SODIUM
     Dosage: 20 MG, WEEKLY

REACTIONS (15)
  - Joint range of motion decreased [Unknown]
  - Synovitis [Unknown]
  - Musculoskeletal stiffness [Unknown]
  - Joint effusion [Unknown]
  - Joint swelling [Unknown]
  - Condition aggravated [Unknown]
  - Joint warmth [Unknown]
  - Joint stiffness [Unknown]
  - Joint contracture [Unknown]
  - Grip strength decreased [Unknown]
  - Metatarsalgia [Unknown]
  - Rheumatoid nodule [Unknown]
  - Arthralgia [Unknown]
  - Nodal osteoarthritis [Unknown]
  - Sjogren^s syndrome [Unknown]
